FAERS Safety Report 7423639-8 (Version None)
Quarter: 2011Q2

REPORT INFORMATION
  Report Type: 
  Country: None (occurrence: None)
  Receive Date: 20110413
  Receipt Date: 20110413
  Transmission Date: 20111010
  Serious: Yes (Hospitalization)
  Sender: FDA-Public Use
  Company Number: None

PATIENT
  Age: 69 Year
  Sex: Female
  Weight: 88.1 kg

DRUGS (6)
  1. LOMOTIL [Concomitant]
  2. POTASSIUM CHLORIDE [Concomitant]
  3. COMPAZINE [Concomitant]
  4. CHOLECALCIFEROL [Concomitant]
  5. OXALIPLATIN [Suspect]
     Indication: COLON CANCER METASTATIC
     Dosage: IV CHRONIC THIRD CHEMO TREATMENTS
     Route: 042
  6. LISINOPRIL AND HYDROCHLOROTHIAZIDE [Concomitant]

REACTIONS (4)
  - HYPOKALAEMIA [None]
  - DYSPNOEA [None]
  - HYPOTENSION [None]
  - CHEST DISCOMFORT [None]
